FAERS Safety Report 24786123 (Version 1)
Quarter: 2024Q4

REPORT INFORMATION
  Report Type: Report from Study
  Country: US (occurrence: US)
  Receive Date: 20241229
  Receipt Date: 20241229
  Transmission Date: 20250115
  Serious: Yes (Hospitalization, Other)
  Sender: ABBVIE
  Company Number: US-ABBVIE-6027323

PATIENT
  Age: 78 Year
  Sex: Female
  Weight: 73 kg

DRUGS (2)
  1. LUMIGAN [Suspect]
     Active Substance: BIMATOPROST
     Indication: Glaucoma
     Dosage: 1 DROP EACH EYE, FORM STRENGTH: 0.1MG/ML
     Route: 047
     Dates: start: 202306
  2. RESTASIS [Suspect]
     Active Substance: CYCLOSPORINE
     Indication: Dry eye
     Dosage: 1 DROP IN EACH EYE, FORM STRENGTH: 0.5MG/ML
     Route: 047
     Dates: start: 2019

REACTIONS (4)
  - Hip fracture [Recovered/Resolved]
  - Glaucoma [Not Recovered/Not Resolved]
  - Tremor [Not Recovered/Not Resolved]
  - Retinal tear [Not Recovered/Not Resolved]

NARRATIVE: CASE EVENT DATE: 20220101
